FAERS Safety Report 8560961-6 (Version None)
Quarter: 2012Q3

REPORT INFORMATION
  Report Type: 
  Country: None (occurrence: None)
  Receive Date: 20120802
  Receipt Date: 20120725
  Transmission Date: 20120928
  Serious: Yes (Hospitalization)
  Sender: FDA-Public Use
  Company Number: CA-ELI_LILLY_AND_COMPANY-CA201207008582

PATIENT
  Age: 86 Year
  Sex: Female

DRUGS (21)
  1. PREDNISONE [Concomitant]
  2. CALCIUM CARBONATE [Concomitant]
  3. DOCUSATE SODIUM [Concomitant]
  4. ASPIRIN [Concomitant]
  5. CLOTRIMAZOLE [Concomitant]
  6. CYCLOSPORINE [Concomitant]
  7. GABAPENTIN [Concomitant]
  8. LORAZEPAM [Concomitant]
  9. FORTEO [Suspect]
     Dosage: 20 MG, QD
     Route: 058
     Dates: start: 20111024
  10. EXTRA STRENGTH TYLENOL [Concomitant]
  11. DIGOXIN [Concomitant]
  12. LANSOPRAZOLE [Concomitant]
  13. METOPROLOL TARTRATE [Concomitant]
  14. ZOLOFT [Concomitant]
  15. POTASSIUM CHLORIDE [Concomitant]
  16. FORTEO [Suspect]
     Indication: OSTEOPOROSIS
     Dosage: 20 UG, QD
     Route: 058
     Dates: start: 20100514, end: 20110501
  17. FERROUS GLUCONATE [Concomitant]
  18. VITAMIN D [Concomitant]
  19. SYNTHROID [Concomitant]
  20. HYDROMORPHINE HYDROCHLORIDE [Concomitant]
  21. LENOLTEC [Concomitant]

REACTIONS (1)
  - ESCHERICHIA INFECTION [None]
